FAERS Safety Report 9525348 (Version 1)
Quarter: 2013Q1

REPORT INFORMATION
  Report Type: Spontaneous
  Country: US (occurrence: None)
  Receive Date: 20130314
  Receipt Date: 20130314
  Transmission Date: 20140127
  Serious: No
  Sender: FDA-Public Use
  Company Number: 1212USA005112

PATIENT
  Sex: Male

DRUGS (3)
  1. VICTRELIS (BOCEPREVIR) CAPSULE [Suspect]
     Dosage: UNK, QW, ORAL
  2. RIBAVIRIN (RIBAVIRIN) CAPSULE [Suspect]
     Dosage: UNK, QW, ORAL
  3. PEGINTERFERON ALFA-2A (PEGINTERFERON ALFA-2A) [Suspect]

REACTIONS (5)
  - Abdominal distension [None]
  - Rhinorrhoea [None]
  - Burning sensation [None]
  - Weight increased [None]
  - Gastrointestinal disorder [None]
